FAERS Safety Report 23794366 (Version 3)
Quarter: 2025Q4

REPORT INFORMATION
  Report Type: Spontaneous
  Country: US (occurrence: US)
  Receive Date: 20240429
  Receipt Date: 20251226
  Transmission Date: 20260118
  Serious: Yes (Other)
  Sender: NOVARTIS
  Company Number: US-002147023-NVSC2024US089948

PATIENT
  Age: 56 Year
  Sex: Male
  Weight: 74.8 kg

DRUGS (2)
  1. FINGOLIMOD [Suspect]
     Active Substance: FINGOLIMOD
     Indication: Relapsing-remitting multiple sclerosis
     Dosage: UNK UNK, QD
     Route: 065
     Dates: start: 2014, end: 20230901
  2. FINGOLIMOD [Suspect]
     Active Substance: FINGOLIMOD
     Dosage: UNK
     Route: 048
     Dates: start: 20140615, end: 20230815

REACTIONS (2)
  - Kaposi^s sarcoma [Recovered/Resolved]
  - Skin lesion [Unknown]

NARRATIVE: CASE EVENT DATE: 20230701
